FAERS Safety Report 7323992-X (Version None)
Quarter: 2011Q1

REPORT INFORMATION
  Report Type: 
  Country: None (occurrence: None)
  Receive Date: 20110217
  Receipt Date: 20110203
  Transmission Date: 20110831
  Serious: Yes (Other)
  Sender: FDA-Public Use
  Company Number: 1000017607

PATIENT
  Age: 43 Year
  Sex: Female
  Weight: 62 kg

DRUGS (4)
  1. IMOVANE (ZOPICLONE) [Concomitant]
  2. ESCITALOPRAM [Suspect]
     Indication: DEPRESSION
     Dosage: 10 MG (10 MG, 1 IN 1 D), ORAL
     Route: 048
     Dates: start: 20100915, end: 20101124
  3. PRAZEPAM [Concomitant]
  4. AMITRIPTYLINE HCL [Concomitant]

REACTIONS (3)
  - HYPERSENSITIVITY [None]
  - EYE OEDEMA [None]
  - FACE OEDEMA [None]
